FAERS Safety Report 9321528 (Version 1)
Quarter: 2013Q2

REPORT INFORMATION
  Report Type: Spontaneous
  Country: CN (occurrence: CN)
  Receive Date: 20130531
  Receipt Date: 20130531
  Transmission Date: 20140414
  Serious: Yes (Hospitalization)
  Sender: FDA-Public Use
  Company Number: CN-BRISTOL-MYERS SQUIBB COMPANY-18932350

PATIENT
  Age: 40 Year
  Sex: Female

DRUGS (1)
  1. BARACLUDE [Suspect]
     Route: 048
     Dates: start: 2006

REACTIONS (3)
  - Gastric polyps [Unknown]
  - Fatigue [Unknown]
  - Headache [Unknown]
